FAERS Safety Report 7802333-5 (Version None)
Quarter: 2011Q4

REPORT INFORMATION
  Report Type: 
  Country: None (occurrence: None)
  Receive Date: 20111007
  Receipt Date: 20111004
  Transmission Date: 20120403
  Serious: Yes (Other)
  Sender: FDA-Public Use
  Company Number: US-AMGEN-USASP2011039323

PATIENT
  Age: 67 Year
  Sex: Female

DRUGS (6)
  1. NPLATE [Suspect]
     Indication: IDIOPATHIC THROMBOCYTOPENIC PURPURA
     Dosage: 1.3 MUG/KG, UNK
     Dates: start: 20100811, end: 20110503
  2. XANAX [Concomitant]
     Dosage: 0.5 MG, UNK
  3. PROZAC [Concomitant]
     Dosage: 20 MG, UNK
  4. COZAAR [Concomitant]
     Dosage: 25 MG, UNK
  5. HYDROCHLOROTHIAZIDE [Concomitant]
     Dosage: 12.5 MG, UNK
  6. DOXEPIN [Concomitant]
     Dosage: 6 MG, PRN

REACTIONS (3)
  - DIZZINESS [None]
  - THROMBOCYTOPENIA [None]
  - FATIGUE [None]
